FAERS Safety Report 4313702-2 (Version None)
Quarter: 2004Q1

REPORT INFORMATION
  Report Type: 
  Country: None (occurrence: None)
  Receive Date: 20040305
  Receipt Date: 20031006
  Transmission Date: 20041129
  Serious: Yes (Hospitalization, Other)
  Sender: FDA-Public Use
  Company Number: KII-2003-0007794

PATIENT
  Age: 2 Year
  Sex: Male

DRUGS (3)
  1. OXYCONTIN [Suspect]
  2. AMOXICILLIN [Concomitant]
  3. IBUPROFEN [Concomitant]

REACTIONS (4)
  - ACCIDENTAL EXPOSURE [None]
  - DEPRESSED LEVEL OF CONSCIOUSNESS [None]
  - PSYCHOMOTOR HYPERACTIVITY [None]
  - SOMNOLENCE [None]
